FAERS Safety Report 7340730-5 (Version None)
Quarter: 2011Q1

REPORT INFORMATION
  Report Type: 
  Country: None (occurrence: None)
  Receive Date: 20110228
  Receipt Date: 20110214
  Transmission Date: 20110831
  Serious: Yes (Life-Threatening)
  Sender: FDA-Public Use
  Company Number: 012352

PATIENT
  Age: 56 Year
  Sex: Male

DRUGS (11)
  1. BUSULFAN [Suspect]
     Indication: STEM CELL TRANSPLANT
     Dosage: (60 MG, DAILY DOSE, INTRAVENOUS) (224 MG, DAILY DOSE, INTRAVENOUS)
     Route: 042
     Dates: start: 20101202, end: 20101205
  2. BUSULFAN [Suspect]
     Indication: STEM CELL TRANSPLANT
     Dosage: (60 MG, DAILY DOSE, INTRAVENOUS) (224 MG, DAILY DOSE, INTRAVENOUS)
     Route: 042
     Dates: start: 20101129, end: 20101129
  3. ETOPOSIDE [Concomitant]
  4. CYCLOPHOSPHAMIDE [Concomitant]
  5. ACYCLOVIR [Concomitant]
  6. ACETAMINOPHEN [Concomitant]
  7. DIPHENHYDRAMINE (DIPHENHYDRAMINE) [Concomitant]
  8. PROCHLORPERAZINE MALEATE [Concomitant]
  9. NYSTATIN [Concomitant]
  10. LORAZEPAM [Concomitant]
  11. METOCLOPRAMIDE [Concomitant]

REACTIONS (12)
  - HEPATIC ENZYME INCREASED [None]
  - KLEBSIELLA BACTERAEMIA [None]
  - COLITIS [None]
  - PLATELET COUNT DECREASED [None]
  - ATRIAL FIBRILLATION [None]
  - SEPTIC SHOCK [None]
  - BLOOD CULTURE POSITIVE [None]
  - CLOSTRIDIUM TEST POSITIVE [None]
  - BLOOD BILIRUBIN INCREASED [None]
  - WHITE BLOOD CELL COUNT DECREASED [None]
  - FEBRILE NEUTROPENIA [None]
  - INTESTINAL ULCER [None]
